FAERS Safety Report 7420728 (Version 2)
Quarter: 2014Q1

REPORT INFORMATION
  Report Type: Spontaneous
  Country: US (occurrence: US)
  Receive Date: 20100616
  Receipt Date: 20140224
  Transmission Date: 20141002
  Serious: Yes (Other)
  Sender: FDA-Public Use
  Company Number: US-JNJFOC-20100603015

PATIENT
  Age: 36 Year
  Sex: Male

DRUGS (17)
  1. FENTANYL TRANSDERMAL SYSTEM [Suspect]
     Indication: BACK PAIN
     Route: 062
     Dates: start: 200611, end: 2009
  2. FENTANYL TRANSDERMAL SYSTEM [Suspect]
     Indication: BACK PAIN
     Route: 062
     Dates: start: 200611, end: 2009
  3. FENTANYL TRANSDERMAL SYSTEM [Suspect]
     Indication: NECK PAIN
     Route: 062
     Dates: start: 200611, end: 2009
  4. FENTANYL TRANSDERMAL SYSTEM [Suspect]
     Indication: NECK PAIN
     Route: 062
     Dates: start: 200611, end: 2009
  5. WATSON FENTANYL TRANSDERMAL SYSTEM [Suspect]
     Indication: BACK PAIN
     Dosage: 2 X 75 UG/HR PATCH
     Route: 062
     Dates: start: 20100521
  6. WATSON FENTANYL TRANSDERMAL SYSTEM [Suspect]
     Indication: BACK PAIN
     Dosage: 2 X 75 UG/HR PATCH
     Route: 062
     Dates: start: 20100524
  7. WATSON FENTANYL TRANSDERMAL SYSTEM [Suspect]
     Indication: BACK PAIN
     Dosage: 2 X 75 UG/HR PATCH
     Route: 062
     Dates: start: 2009
  8. WATSON FENTANYL TRANSDERMAL SYSTEM [Suspect]
     Indication: BACK PAIN
     Route: 062
     Dates: start: 200611, end: 2009
  9. WATSON FENTANYL TRANSDERMAL SYSTEM [Suspect]
     Indication: BACK PAIN
     Route: 062
     Dates: start: 200611, end: 2009
  10. WATSON FENTANYL TRANSDERMAL SYSTEM [Suspect]
     Indication: NECK PAIN
     Dosage: 2 X 75 UG/HR PATCH
     Route: 062
     Dates: start: 20100524
  11. WATSON FENTANYL TRANSDERMAL SYSTEM [Suspect]
     Indication: NECK PAIN
     Dosage: 2 X 75 UG/HR PATCH
     Route: 062
     Dates: start: 20100521
  12. WATSON FENTANYL TRANSDERMAL SYSTEM [Suspect]
     Indication: NECK PAIN
     Route: 062
     Dates: start: 200611, end: 2009
  13. WATSON FENTANYL TRANSDERMAL SYSTEM [Suspect]
     Indication: NECK PAIN
     Route: 062
     Dates: start: 200611, end: 2009
  14. WATSON FENTANYL TRANSDERMAL SYSTEM [Suspect]
     Indication: NECK PAIN
     Dosage: 2 X 75 UG/HR PATCH
     Route: 062
     Dates: start: 2009
  15. HIV MEDICATION [Concomitant]
     Route: 065
  16. LYRICA [Concomitant]
     Route: 065
     Dates: start: 200611
  17. OXYCODONE [Concomitant]
     Route: 065
     Dates: start: 200611

REACTIONS (6)
  - Cognitive disorder [Not Recovered/Not Resolved]
  - Feeling abnormal [Not Recovered/Not Resolved]
  - Nausea [Not Recovered/Not Resolved]
  - Application site reaction [Not Recovered/Not Resolved]
  - Dermatitis contact [Unknown]
  - Product adhesion issue [Unknown]
